FAERS Safety Report 14294591 (Version 2)
Quarter: 2018Q1

REPORT INFORMATION
  Report Type: Spontaneous
  Country: US (occurrence: US)
  Receive Date: 20171218
  Receipt Date: 20180202
  Transmission Date: 20180509
  Serious: No
  Sender: FDA-Public Use
  Company Number: US-BIOGEN-2017BI00482526

PATIENT
  Sex: Female

DRUGS (7)
  1. TECFIDERA [Suspect]
     Active Substance: DIMETHYL FUMARATE
     Indication: MULTIPLE SCLEROSIS
     Route: 048
     Dates: start: 20170825
  2. TECFIDERA [Suspect]
     Active Substance: DIMETHYL FUMARATE
     Dosage: MAINTENANCE DOSE
     Route: 048
  3. COPAXONE [Concomitant]
     Active Substance: GLATIRAMER ACETATE
     Route: 065
  4. AUBAGIO [Concomitant]
     Active Substance: TERIFLUNOMIDE
     Indication: MULTIPLE SCLEROSIS
     Route: 065
  5. COPAXONE [Concomitant]
     Active Substance: GLATIRAMER ACETATE
     Indication: MULTIPLE SCLEROSIS
     Route: 065
  6. AUBAGIO [Concomitant]
     Active Substance: TERIFLUNOMIDE
     Route: 065
  7. TECFIDERA [Suspect]
     Active Substance: DIMETHYL FUMARATE
     Dosage: STARTING DOSE
     Route: 048

REACTIONS (10)
  - Fear [Not Recovered/Not Resolved]
  - Adverse drug reaction [Recovered/Resolved]
  - Hepatic enzyme increased [Not Recovered/Not Resolved]
  - Malaise [Unknown]
  - Vitamin D decreased [Not Recovered/Not Resolved]
  - Gait inability [Not Recovered/Not Resolved]
  - Anxiety [Not Recovered/Not Resolved]
  - Feeling abnormal [Not Recovered/Not Resolved]
  - Hypersensitivity [Recovered/Resolved]
  - Vomiting [Unknown]
